FAERS Safety Report 25930043 (Version 2)
Quarter: 2025Q4

REPORT INFORMATION
  Report Type: Report from Study
  Country: US (occurrence: US)
  Receive Date: 20251016
  Receipt Date: 20251201
  Transmission Date: 20260117
  Serious: Yes (Hospitalization, Other)
  Sender: EISAI
  Company Number: US-Eisai-EC-2025-198248

PATIENT
  Age: 85 Year
  Sex: Male
  Weight: 87.27 kg

DRUGS (7)
  1. LECANEMAB [Suspect]
     Active Substance: LECANEMAB
     Indication: Dementia Alzheimer^s type
     Route: 042
     Dates: start: 20250317, end: 20250317
  2. LECANEMAB [Suspect]
     Active Substance: LECANEMAB
     Route: 042
     Dates: start: 20250414, end: 20250414
  3. ASPIRIN [Concomitant]
     Active Substance: ASPIRIN
     Indication: Cardiovascular event prophylaxis
     Route: 048
  4. ATENOLOL [Concomitant]
     Active Substance: ATENOLOL
     Indication: Cardiovascular event prophylaxis
     Route: 048
  5. DONEPEZIL [Concomitant]
     Active Substance: DONEPEZIL
     Indication: Cognitive disorder
     Route: 048
     Dates: start: 202007
  6. ROSUVASTATIN [Concomitant]
     Active Substance: ROSUVASTATIN
     Indication: Product used for unknown indication
     Route: 048
  7. MEMANTINE [Concomitant]
     Active Substance: MEMANTINE
     Indication: Cognitive disorder
     Route: 048
     Dates: start: 202211

REACTIONS (2)
  - Infusion related reaction [Recovered/Resolved]
  - Fatigue [Recovered/Resolved]

NARRATIVE: CASE EVENT DATE: 20250317
